FAERS Safety Report 8680981 (Version 3)
Quarter: 2012Q4

REPORT INFORMATION
  Report Type: 
  Country: JP (occurrence: JP)
  Receive Date: 20120724
  Receipt Date: 20120924
  Transmission Date: 20130627
  Serious: Yes (Hospitalization)
  Sender: FDA-Public Use
  Company Number: JP-PFIZER INC-2012172647

PATIENT
  Age: 70 Year
  Sex: Male

DRUGS (10)
  1. LYRICA [Suspect]
     Dosage: 450 mg a day
     Route: 048
  2. AMLODIN [Concomitant]
     Dosage: UNK
  3. LISINOPRIL [Concomitant]
     Dosage: UNK
  4. DIOVAN [Concomitant]
     Dosage: UNK
  5. MYSLEE [Concomitant]
     Dosage: UNK
  6. LEDOLPER [Concomitant]
     Dosage: UNK
  7. TRIAZOLAM [Concomitant]
     Dosage: UNK
  8. CYMBALTA [Concomitant]
     Dosage: UNK
  9. YODEL [Concomitant]
     Dosage: UNK
  10. RISPERDAL [Concomitant]
     Dosage: UNK

REACTIONS (4)
  - Gastric ulcer [Recovering/Resolving]
  - Gastric dilatation [Recovering/Resolving]
  - Gastritis bacterial [Recovering/Resolving]
  - Pneumonia [Unknown]
